FAERS Safety Report 8421155-8 (Version None)
Quarter: 2012Q2

REPORT INFORMATION
  Report Type: 
  Country: None (occurrence: None)
  Receive Date: 20120604
  Receipt Date: 20120604
  Transmission Date: 20120825
  Serious: No
  Sender: FDA-Public Use
  Company Number: None

PATIENT
  Age: 69 Year
  Sex: Female
  Weight: 49.8957 kg

DRUGS (1)
  1. PRAVASTATIN [Suspect]
     Indication: BLOOD CHOLESTEROL INCREASED
     Dosage: 1 TABLET QD PO
     Route: 048
     Dates: start: 20120501, end: 20120529

REACTIONS (3)
  - PRODUCT SUBSTITUTION ISSUE [None]
  - DIARRHOEA [None]
  - PRODUCT QUALITY ISSUE [None]
